FAERS Safety Report 19064637 (Version 1)
Quarter: 2021Q1

REPORT INFORMATION
  Report Type: Spontaneous
  Country: PT (occurrence: PT)
  Receive Date: 20210326
  Receipt Date: 20210326
  Transmission Date: 20210420
  Serious: Yes (Other)
  Sender: FDA-Public Use
  Company Number: PT-GILEAD-2020-0490335

PATIENT
  Age: 34 Year
  Sex: Male
  Weight: 80 kg

DRUGS (12)
  1. NOLOTIL [METAMIZOLE MAGNESIUM] [Concomitant]
     Active Substance: METAMIZOLE MAGNESIUM
     Dosage: SOS 2
     Route: 042
     Dates: start: 20200719
  2. BROMAZEPAM [Concomitant]
     Active Substance: BROMAZEPAM
     Dates: start: 20200720, end: 20200724
  3. SALBUTAMOL [Concomitant]
     Active Substance: ALBUTEROL
     Dosage: 4 DOSAGE FORMS
     Route: 045
     Dates: start: 20200719, end: 20200720
  4. ZOLPIDEM [Concomitant]
     Active Substance: ZOLPIDEM TARTRATE
     Route: 048
     Dates: start: 20200724
  5. MORPHINE [Concomitant]
     Active Substance: MORPHINE
     Dosage: SOS 2
     Dates: start: 20200720, end: 20200722
  6. SUCRALFATE. [Concomitant]
     Active Substance: SUCRALFATE
     Route: 048
     Dates: start: 20200720, end: 20200723
  7. VEKLURY [Suspect]
     Active Substance: REMDESIVIR
     Indication: COVID-19 PNEUMONIA
     Dosage: 200 MG, ONCE
     Route: 042
     Dates: start: 20200719, end: 20200719
  8. IPRATROPIUM BROMIDE. [Concomitant]
     Active Substance: IPRATROPIUM BROMIDE
     Dosage: 4 INALA??ES 8/8H
     Route: 045
     Dates: start: 20200719, end: 20200720
  9. PARACETAMOL [Concomitant]
     Active Substance: ACETAMINOPHEN
     Dosage: SOS 3
     Route: 042
     Dates: start: 20200719
  10. VEKLURY [Suspect]
     Active Substance: REMDESIVIR
     Dosage: 100 MG, QD
     Route: 042
     Dates: start: 20200720, end: 20200724
  11. ENOXAPARIN SODIUM. [Concomitant]
     Active Substance: ENOXAPARIN SODIUM
     Route: 058
     Dates: start: 20200719
  12. BETAHISTINE [Concomitant]
     Active Substance: BETAHISTINE
     Route: 048
     Dates: start: 20200724

REACTIONS (2)
  - COVID-19 treatment [Recovered/Resolved]
  - Transaminases increased [Recovering/Resolving]

NARRATIVE: CASE EVENT DATE: 20200722
